FAERS Safety Report 6508019-1 (Version None)
Quarter: 2009Q4

REPORT INFORMATION
  Report Type: 
  Country: None (occurrence: None)
  Receive Date: 20091221
  Receipt Date: 20091218
  Transmission Date: 20100525
  Serious: Yes (Disabling)
  Sender: FDA-Public Use
  Company Number: DK-WYE-G04878009

PATIENT
  Sex: Female
  Weight: 90 kg

DRUGS (3)
  1. EFFEXOR [Suspect]
     Indication: DEPRESSION
     Route: 048
     Dates: start: 20060517, end: 20091014
  2. EFFEXOR [Suspect]
     Indication: ANXIETY
  3. ALOPAM [Concomitant]
     Dosage: 37.5 MG EVERY
     Route: 048
     Dates: start: 20030801

REACTIONS (2)
  - DISTURBANCE IN SEXUAL AROUSAL [None]
  - FEMALE ORGASMIC DISORDER [None]
